FAERS Safety Report 5349795-3 (Version None)
Quarter: 2007Q2

REPORT INFORMATION
  Report Type: 
  Country: None (occurrence: None)
  Receive Date: 20070607
  Receipt Date: 20070526
  Transmission Date: 20071010
  Serious: Yes (Other)
  Sender: FDA-Public Use
  Company Number: US-PFIZER INC-2007042317

PATIENT
  Sex: Female
  Weight: 60.9 kg

DRUGS (13)
  1. CHANTIX [Suspect]
     Indication: EX-SMOKER
  2. PREDNISONE TAB [Concomitant]
  3. CODEINE SUL TAB [Concomitant]
  4. XANAX [Concomitant]
  5. ARICEPT [Concomitant]
  6. ARTHROTEC [Concomitant]
  7. LEVOTHYROXINE SODIUM [Concomitant]
  8. TOPROL-XL [Concomitant]
  9. ADVIL [Concomitant]
  10. FELODIPINE [Concomitant]
  11. PROAIR HFA [Concomitant]
  12. FLONASE [Concomitant]
  13. ATACAND [Concomitant]

REACTIONS (2)
  - CHRONIC OBSTRUCTIVE PULMONARY DISEASE [None]
  - LUNG NEOPLASM MALIGNANT [None]
